FAERS Safety Report 6829360-9 (Version None)
Quarter: 2010Q3

REPORT INFORMATION
  Report Type: 
  Country: None (occurrence: None)
  Receive Date: 20100709
  Receipt Date: 20070305
  Transmission Date: 20110219
  Serious: No
  Sender: FDA-Public Use
  Company Number: US-PFIZER INC-2007017550

PATIENT
  Sex: Male
  Weight: 70.76 kg

DRUGS (5)
  1. CHANTIX [Suspect]
     Indication: SMOKING CESSATION THERAPY
     Dates: start: 20070101
  2. ESGIC-PLUS [Concomitant]
  3. HYDROCORTISONE [Concomitant]
     Indication: PRURITUS
  4. LEXAPRO [Concomitant]
     Indication: DEPRESSIVE SYMPTOM
  5. LIPITOR [Concomitant]

REACTIONS (6)
  - ABNORMAL DREAMS [None]
  - DECREASED APPETITE [None]
  - DYSGEUSIA [None]
  - HEADACHE [None]
  - MIGRAINE [None]
  - NAUSEA [None]
